FAERS Safety Report 17037439 (Version 2)
Quarter: 2020Q1

REPORT INFORMATION
  Report Type: Spontaneous
  Country: US (occurrence: US)
  Receive Date: 20191115
  Receipt Date: 20200211
  Transmission Date: 20200409
  Serious: Yes (Other)
  Sender: FDA-Public Use
  Company Number: US-HORIZON-PEN-0970-2019

PATIENT
  Age: 64 Year
  Sex: Male

DRUGS (12)
  1. ALPRAZOLAM. [Concomitant]
     Active Substance: ALPRAZOLAM
  2. JANUMET [Concomitant]
     Active Substance: METFORMIN HYDROCHLORIDE\SITAGLIPTIN PHOSPHATE
  3. PENNSAID [Suspect]
     Active Substance: DICLOFENAC SODIUM
     Indication: NEUROPATHY PERIPHERAL
     Dosage: 2 PUMPS
     Dates: start: 20191107, end: 20191107
  4. TIMOLOL. [Concomitant]
     Active Substance: TIMOLOL
  5. OMEPRAZOLE. [Concomitant]
     Active Substance: OMEPRAZOLE
  6. CRESTOR [Concomitant]
     Active Substance: ROSUVASTATIN CALCIUM
  7. LYRICA [Concomitant]
     Active Substance: PREGABALIN
  8. BASAGLAR [Concomitant]
     Active Substance: INSULIN GLARGINE
  9. TELMISARTAN. [Concomitant]
     Active Substance: TELMISARTAN
  10. ASPIRIN. [Concomitant]
     Active Substance: ASPIRIN
  11. DIAZEPAM. [Concomitant]
     Active Substance: DIAZEPAM
  12. AFREZZA [Concomitant]
     Active Substance: INSULIN HUMAN

REACTIONS (2)
  - Blood pressure increased [Not Recovered/Not Resolved]
  - Off label use [Not Recovered/Not Resolved]

NARRATIVE: CASE EVENT DATE: 20191107
